FAERS Safety Report 25216170 (Version 1)
Quarter: 2025Q2

REPORT INFORMATION
  Report Type: Spontaneous
  Country: AR (occurrence: AR)
  Receive Date: 20250418
  Receipt Date: 20250418
  Transmission Date: 20250716
  Serious: Yes (Death)
  Sender: BOEHRINGER INGELHEIM
  Company Number: AR-BoehringerIngelheim-2025-BI-022428

PATIENT
  Age: 70 Year
  Sex: Male

DRUGS (1)
  1. OFEV [Suspect]
     Active Substance: NINTEDANIB
     Indication: Idiopathic pulmonary fibrosis
     Dates: start: 202310, end: 202411

REACTIONS (3)
  - Idiopathic pulmonary fibrosis [Fatal]
  - Diarrhoea [Unknown]
  - Accident [Unknown]

NARRATIVE: CASE EVENT DATE: 20250401
